FAERS Safety Report 19264182 (Version 2)
Quarter: 2021Q2

REPORT INFORMATION
  Report Type: Spontaneous
  Country: GB (occurrence: GB)
  Receive Date: 20210517
  Receipt Date: 20210521
  Transmission Date: 20210717
  Serious: Yes (Other)
  Sender: FDA-Public Use
  Company Number: GB-009507513-2105GBR002700

PATIENT
  Age: 65 Year
  Sex: Male

DRUGS (7)
  1. AZITHROMYCIN ANHYDROUS. [Concomitant]
     Active Substance: AZITHROMYCIN ANHYDROUS
     Dosage: 250 MILLIGRAM MWF
  2. COTRIMOXAZOLE [Concomitant]
     Active Substance: SULFAMETHOXAZOLE\TRIMETHOPRIM
     Dosage: 960 MILLIGRAM BD M/T
  3. IMIPRAMINE [Concomitant]
     Active Substance: IMIPRAMINE
     Dosage: 50 MILLIGRAM TDS
  4. PENICILLINA [Concomitant]
     Active Substance: PENICILLIN G SODIUM
     Dosage: 250 MILLIGRAM BD
     Route: 048
  5. ACICLOVIR [Concomitant]
     Active Substance: ACYCLOVIR
     Dosage: 400 MILLIGRAM BD
  6. PREVYMIS [Suspect]
     Active Substance: LETERMOVIR
     Indication: ANTIVIRAL PROPHYLAXIS
     Dosage: 240 MILLIGRAM, QD
     Route: 048
     Dates: start: 20210218, end: 20210415
  7. CICLOSPORIN [Concomitant]
     Active Substance: CYCLOSPORINE
     Dosage: 110 MILLIGRAM BD

REACTIONS (1)
  - Cytomegalovirus infection reactivation [Recovered/Resolved]

NARRATIVE: CASE EVENT DATE: 20210415
